FAERS Safety Report 8100118-6 (Version None)
Quarter: 2012Q1

REPORT INFORMATION
  Report Type: 
  Country: None (occurrence: None)
  Receive Date: 20120129
  Receipt Date: 20111228
  Transmission Date: 20120608
  Serious: No
  Sender: FDA-Public Use
  Company Number: US-ABBOTT-11P-163-0879075-00

PATIENT
  Age: 65 Year
  Sex: Female

DRUGS (14)
  1. HUMIRA [Suspect]
     Indication: ANKYLOSING SPONDYLITIS
     Dates: start: 20111013
  2. SALMON OIL [Concomitant]
     Indication: PRODUCT USED FOR UNKNOWN INDICATION
     Dosage: OTC
  3. ESTRACE [Concomitant]
     Indication: BACK DISORDER
  4. BENADRYL [Concomitant]
     Indication: HYPERSENSITIVITY
     Dosage: PRN
  5. VITAMIN D [Concomitant]
     Indication: PRODUCT USED FOR UNKNOWN INDICATION
     Dosage: OTC
  6. CALCIUM SUPPLEMENT [Concomitant]
     Indication: PRODUCT USED FOR UNKNOWN INDICATION
  7. ORGANIC SUPPLEMENT [Concomitant]
     Indication: SUPPLEMENTATION THERAPY
  8. IBUPROFEN (ADVIL) [Concomitant]
     Indication: PAIN
  9. AMBIEN [Concomitant]
     Indication: INSOMNIA
     Dosage: AT BEDTIME
  10. CLARITIN [Concomitant]
     Indication: HYPERSENSITIVITY
  11. JUICE PLUS [Concomitant]
     Indication: PRODUCT USED FOR UNKNOWN INDICATION
     Dosage: DEHYDRATED FRUITS AND VEG
  12. ESTRACE [Concomitant]
     Indication: SLEEP DISORDER
  13. ESTRACE [Concomitant]
     Indication: HORMONE REPLACEMENT THERAPY
  14. MAGNESIUM [Concomitant]
     Indication: PRODUCT USED FOR UNKNOWN INDICATION

REACTIONS (10)
  - INJECTION SITE PAPULE [None]
  - INJECTION SITE SWELLING [None]
  - INJECTION SITE ERYTHEMA [None]
  - MOOD ALTERED [None]
  - ABNORMAL SENSATION IN EYE [None]
  - INJECTION SITE PRURITUS [None]
  - EYE PAIN [None]
  - FATIGUE [None]
  - INJECTION SITE WARMTH [None]
  - INJECTION SITE INDURATION [None]
